FAERS Safety Report 7595365-6 (Version None)
Quarter: 2011Q2

REPORT INFORMATION
  Report Type: 
  Country: None (occurrence: None)
  Receive Date: 20110620
  Receipt Date: 20110516
  Transmission Date: 20111010
  Serious: Yes (Hospitalization)
  Sender: FDA-Public Use
  Company Number: UTC-006936

PATIENT
  Age: 18 Year
  Sex: Male
  Weight: 43.6 kg

DRUGS (4)
  1. TYVASO [Suspect]
     Indication: PULMONARY HYPERTENSION
     Dosage: INHALATION
     Route: 055
     Dates: start: 20100716, end: 20110130
  2. REVATIO [Concomitant]
  3. TRACLEER [Concomitant]
  4. EPOPROSTENOL (EPOPROSETENOL) [Concomitant]

REACTIONS (1)
  - PULMONARY ARTERIAL PRESSURE [None]
